FAERS Safety Report 15134151 (Version 2)
Quarter: 2019Q1

REPORT INFORMATION
  Report Type: Other
  Country: DE (occurrence: DE)
  Receive Date: 20180712
  Receipt Date: 20190321
  Transmission Date: 20190417
  Serious: Yes (Life-Threatening, Other)
  Sender: FDA-Public Use
  Company Number: DE-BIODELIVERY SCIENCES INTERNATIONAL-2018BDSI0065

PATIENT
  Age: 52 Year
  Sex: Male

DRUGS (11)
  1. ETOMIDATE. [Suspect]
     Active Substance: ETOMIDATE
     Indication: ANAESTHESIA
     Route: 065
  2. FENTANYL CITRATE. [Suspect]
     Active Substance: FENTANYL CITRATE
     Indication: GENERAL ANAESTHESIA
     Route: 065
  3. PANCURONIUM BROMIDE. [Suspect]
     Active Substance: PANCURONIUM BROMIDE
     Indication: GENERAL ANAESTHESIA
     Route: 065
  4. BUPIVACAINE. [Suspect]
     Active Substance: BUPIVACAINE
     Indication: ANAESTHESIA
     Route: 065
  5. ISOFLURANE. [Suspect]
     Active Substance: ISOFLURANE
     Indication: GENERAL ANAESTHESIA
     Route: 055
  6. ISOFLURANE. [Suspect]
     Active Substance: ISOFLURANE
     Indication: ANAESTHESIA
  7. PANCURONIUM BROMIDE. [Suspect]
     Active Substance: PANCURONIUM BROMIDE
     Indication: ANAESTHESIA
  8. ATROPINE. [Suspect]
     Active Substance: ATROPINE
     Indication: PRODUCT USED FOR UNKNOWN INDICATION
     Route: 065
  9. ETOMIDATE. [Suspect]
     Active Substance: ETOMIDATE
     Indication: GENERAL ANAESTHESIA
     Route: 065
  10. FENTANYL CITRATE. [Suspect]
     Active Substance: FENTANYL CITRATE
     Indication: ANAESTHESIA
  11. SUCCINYLCHOLINE CHLORIDE. [Suspect]
     Active Substance: SUCCINYLCHOLINE CHLORIDE
     Indication: PRODUCT USED FOR UNKNOWN INDICATION
     Route: 065

REACTIONS (11)
  - Multiple organ dysfunction syndrome [Recovering/Resolving]
  - Renal failure [Recovered/Resolved]
  - Platelet count decreased [Recovering/Resolving]
  - Rhabdomyolysis [Unknown]
  - Hyperthermia [Recovering/Resolving]
  - Muscular weakness [Recovering/Resolving]
  - Coma [Recovering/Resolving]
  - CD4 lymphocytes decreased [Recovering/Resolving]
  - Blood creatine phosphokinase increased [Recovering/Resolving]
  - Oxygen saturation decreased [Recovering/Resolving]
  - Septic shock [Unknown]
